FAERS Safety Report 10010768 (Version 1)
Quarter: 2014Q1

REPORT INFORMATION
  Report Type: Report from Study
  Country: US (occurrence: US)
  Receive Date: 20140314
  Receipt Date: 20140314
  Transmission Date: 20141002
  Serious: No
  Sender: FDA-Public Use
  Company Number: US-009507513-1403USA007055

PATIENT
  Sex: 0

DRUGS (1)
  1. ETONOGESTREL IMPLANT- IMPLANON NEXT [Suspect]
     Dosage: 68 MG IMPLANT
     Route: 059
     Dates: start: 20140204

REACTIONS (1)
  - Complication of device insertion [Unknown]
